FAERS Safety Report 8579295-9 (Version None)
Quarter: 2012Q3

REPORT INFORMATION
  Report Type: 
  Country: None (occurrence: None)
  Receive Date: 20120808
  Receipt Date: 20120803
  Transmission Date: 20120928
  Serious: Yes (Other)
  Sender: FDA-Public Use
  Company Number: PL-ROCHE-1097190

PATIENT
  Age: 69 Year
  Sex: Female
  Weight: 67 kg

DRUGS (7)
  1. ARIMIDEX [Concomitant]
     Indication: ADJUVANT THERAPY
     Route: 048
     Dates: start: 20120228
  2. POLFILIN [Concomitant]
     Indication: PERIPHERAL VASCULAR DISORDER
     Route: 048
  3. HERCEPTIN [Suspect]
     Indication: ADJUVANT THERAPY
     Route: 042
     Dates: start: 20111004
  4. BISOPROLOL FUMARATE [Concomitant]
     Route: 048
  5. ENARENAL [Concomitant]
     Route: 048
  6. TAMOXIFEN CITRATE [Suspect]
     Indication: ADJUVANT THERAPY
     Route: 048
     Dates: start: 20110929, end: 20120228
  7. ENOXAPARIN SODIUM [Concomitant]
     Indication: PULMONARY EMBOLISM
     Route: 058
     Dates: start: 20120228

REACTIONS (1)
  - PULMONARY EMBOLISM [None]
